FAERS Safety Report 10651210 (Version 1)
Quarter: 2014Q4

REPORT INFORMATION
  Report Type: Spontaneous
  Country: US (occurrence: US)
  Receive Date: 20141215
  Receipt Date: 20141215
  Transmission Date: 20150529
  Serious: Yes (Hospitalization)
  Sender: FDA-Public Use
  Company Number: US-BAYER-2014-181907

PATIENT
  Age: 46 Year
  Sex: Female

DRUGS (1)
  1. BETASERON [Suspect]
     Active Substance: INTERFERON BETA-1B
     Indication: MULTIPLE SCLEROSIS
     Dosage: 0.03 ?G, QOD
     Route: 058
     Dates: start: 201101, end: 201405

REACTIONS (2)
  - Serotonin syndrome [None]
  - Encephalitis [None]

NARRATIVE: CASE EVENT DATE: 201405
